FAERS Safety Report 22140803 (Version 4)
Quarter: 2023Q2

REPORT INFORMATION
  Report Type: Spontaneous
  Country: US (occurrence: US)
  Receive Date: 20230327
  Receipt Date: 20230524
  Transmission Date: 20230721
  Serious: Yes (Other)
  Sender: FDA-Public Use
  Company Number: US-GLAXOSMITHKLINE-US2023AMR043654

PATIENT

DRUGS (1)
  1. ZEJULA [Suspect]
     Active Substance: NIRAPARIB
     Indication: Ovarian cancer
     Dosage: 200 MG, QD

REACTIONS (8)
  - Malignant neoplasm progression [Unknown]
  - White blood cell count increased [Recovered/Resolved]
  - Coronavirus infection [Unknown]
  - Carbohydrate antigen 125 increased [Unknown]
  - Blood pressure increased [Unknown]
  - Red blood cell count abnormal [Recovered/Resolved]
  - Lymphadenopathy [Unknown]
  - Product dose omission issue [Unknown]

NARRATIVE: CASE EVENT DATE: 20230101
